FAERS Safety Report 18570773 (Version 2)
Quarter: 2021Q2

REPORT INFORMATION
  Report Type: Spontaneous
  Country: US (occurrence: US)
  Receive Date: 20201202
  Receipt Date: 20210414
  Transmission Date: 20210717
  Serious: No
  Sender: FDA-Public Use
  Company Number: US-PFIZER INC-2020467859

PATIENT
  Age: 6 Year
  Sex: Male

DRUGS (1)
  1. GENOTROPIN MQ [Suspect]
     Active Substance: SOMATROPIN
     Dosage: 0.6 MG, 5 DAYS A WEEK
     Dates: start: 20190108

REACTIONS (3)
  - Thyroxine free decreased [Unknown]
  - Intentional product misuse [Unknown]
  - Weight gain poor [Unknown]
